FAERS Safety Report 16693791 (Version 2)
Quarter: 2019Q3

REPORT INFORMATION
  Report Type: Report from Study
  Country: NL (occurrence: NL)
  Receive Date: 20190812
  Receipt Date: 20190823
  Transmission Date: 20191004
  Serious: Yes (Hospitalization, Other)
  Sender: FDA-Public Use
  Company Number: NL-BRISTOL-MYERS SQUIBB COMPANY-BMS-2019-077533

PATIENT
  Age: 52 Year
  Sex: Male
  Weight: 87 kg

DRUGS (10)
  1. UREA. [Concomitant]
     Active Substance: UREA
     Indication: PRODUCT USED FOR UNKNOWN INDICATION
     Dosage: 100 OTHER
     Route: 061
     Dates: start: 20180907
  2. PARACETAMOL [Concomitant]
     Active Substance: ACETAMINOPHEN
     Indication: PROPHYLAXIS
     Dosage: 3000 MILLIGRAM
     Route: 048
     Dates: start: 20190430
  3. CLEMASTINE [Concomitant]
     Active Substance: CLEMASTINE
     Indication: PROPHYLAXIS
     Dosage: 2 MILLIGRAM
     Route: 042
     Dates: start: 20190531
  4. METOCLOPRAMIDE. [Concomitant]
     Active Substance: METOCLOPRAMIDE
     Indication: PRODUCT USED FOR UNKNOWN INDICATION
     Dosage: 30 MILLIGRAM
     Route: 048
     Dates: start: 20190627
  5. TEMAZEPAM. [Concomitant]
     Active Substance: TEMAZEPAM
     Indication: PRODUCT USED FOR UNKNOWN INDICATION
     Dosage: 20 MILLIGRAM
     Route: 048
     Dates: start: 20190430
  6. IBUPROFEN. [Concomitant]
     Active Substance: IBUPROFEN
     Indication: PRODUCT USED FOR UNKNOWN INDICATION
     Dosage: 600 MILLIGRAM
     Route: 048
     Dates: start: 20190405
  7. IPILIMUMAB [Suspect]
     Active Substance: IPILIMUMAB
     Indication: INTESTINAL ADENOCARCINOMA
     Dosage: 86 MILLIGRAM
     Route: 042
     Dates: start: 20190430, end: 20190726
  8. MAGNESIUM HYDROXIDE. [Concomitant]
     Active Substance: MAGNESIUM HYDROXIDE
     Indication: PRODUCT USED FOR UNKNOWN INDICATION
     Dosage: 724 MILLIGRAM
     Route: 048
     Dates: start: 20190405
  9. NIFEDIPINE. [Concomitant]
     Active Substance: NIFEDIPINE
     Indication: PRODUCT USED FOR UNKNOWN INDICATION
     Dosage: 30 MILLIGRAM
     Route: 048
     Dates: start: 20190417
  10. NIVOLUMAB [Suspect]
     Active Substance: NIVOLUMAB
     Indication: INTESTINAL ADENOCARCINOMA
     Dosage: 240 MILLIGRAM
     Route: 042
     Dates: start: 20190430, end: 20190726

REACTIONS (1)
  - Gastric perforation [Not Recovered/Not Resolved]

NARRATIVE: CASE EVENT DATE: 20190804
